FAERS Safety Report 4991201-2 (Version None)
Quarter: 2006Q2

REPORT INFORMATION
  Report Type: 
  Country: None (occurrence: None)
  Receive Date: 20060504
  Receipt Date: 20060423
  Transmission Date: 20061013
  Serious: Yes (Other)
  Sender: FDA-Public Use
  Company Number: US-ROCHE-445526

PATIENT
  Age: 31 Year
  Sex: Female
  Weight: 54.4 kg

DRUGS (4)
  1. PEGASYS [Suspect]
     Indication: HEPATITIS C
     Route: 058
     Dates: start: 20060421
  2. COPEGUS [Suspect]
     Indication: HEPATITIS C
     Dosage: REPORTED AS 2 AM, 2 PM.
     Route: 048
     Dates: start: 20060421
  3. LEXAPRO [Concomitant]
     Indication: DEPRESSION
     Route: 048
  4. MULTIVITAMIN NOS [Concomitant]
     Route: 048

REACTIONS (4)
  - DIZZINESS [None]
  - FEELING HOT AND COLD [None]
  - LOSS OF CONSCIOUSNESS [None]
  - TREMOR [None]
